FAERS Safety Report 15925684 (Version 1)
Quarter: 2019Q1

REPORT INFORMATION
  Report Type: Spontaneous
  Country: JP (occurrence: JP)
  Receive Date: 20190206
  Receipt Date: 20190206
  Transmission Date: 20190417
  Serious: Yes (Other)
  Sender: FDA-Public Use
  Company Number: JP-CLINIGEN GROUP PLC/ CLINIGEN HEALTHCARE LTD-JP-CLGN-19-00049

PATIENT
  Age: 8 Year
  Sex: Male

DRUGS (1)
  1. FOSCAVIR [Suspect]
     Active Substance: FOSCARNET SODIUM
     Indication: HUMAN HERPESVIRUS 6 INFECTION
     Dates: start: 20190104

REACTIONS (9)
  - Nephrotic syndrome [Recovering/Resolving]
  - Pollakiuria [Recovering/Resolving]
  - Off label use [Unknown]
  - Hypoproteinaemia [Recovering/Resolving]
  - Haematuria [Recovering/Resolving]
  - Encephalopathy [Unknown]
  - Urine output decreased [Recovering/Resolving]
  - Proteinuria [Recovering/Resolving]
  - Dysuria [Recovering/Resolving]

NARRATIVE: CASE EVENT DATE: 20190125
